FAERS Safety Report 17597106 (Version 1)
Quarter: 2020Q1

REPORT INFORMATION
  Report Type: Spontaneous
  Country: GB (occurrence: GB)
  Receive Date: 20200330
  Receipt Date: 20200330
  Transmission Date: 20200409
  Serious: Yes (Other)
  Sender: FDA-Public Use
  Company Number: GB-TEVA-2020-GB-1212390

PATIENT
  Age: 12 Year
  Sex: Male
  Weight: 54.88 kg

DRUGS (1)
  1. LANSOPRAZOLE. [Suspect]
     Active Substance: LANSOPRAZOLE
     Indication: GASTROOESOPHAGEAL REFLUX DISEASE
     Dosage: 30 MILLIGRAM DAILY; IN MORNING
     Route: 048
     Dates: start: 20200221

REACTIONS (3)
  - Pruritus [Not Recovered/Not Resolved]
  - Mood swings [Not Recovered/Not Resolved]
  - Regurgitation [Not Recovered/Not Resolved]

NARRATIVE: CASE EVENT DATE: 20200228
